FAERS Safety Report 11176039 (Version 1)
Quarter: 2015Q2

REPORT INFORMATION
  Report Type: Spontaneous
  Country: US (occurrence: US)
  Receive Date: 20150609
  Receipt Date: 20150609
  Transmission Date: 20150821
  Serious: Yes (Other)
  Sender: FDA-Public Use
  Company Number: US-ELI_LILLY_AND_COMPANY-US201505010109

PATIENT
  Age: 51 Year
  Sex: Female

DRUGS (2)
  1. CYMBALTA [Suspect]
     Active Substance: DULOXETINE HYDROCHLORIDE
     Indication: FIBROMYALGIA
     Dosage: UNK, UNKNOWN
     Route: 065
  2. COPAXONE [Suspect]
     Active Substance: GLATIRAMER ACETATE
     Indication: MULTIPLE SCLEROSIS
     Dosage: 40 MG, UNKNOWN
     Dates: start: 20140527

REACTIONS (11)
  - Burning sensation [Unknown]
  - Fibromyalgia [Unknown]
  - Optic neuritis [Unknown]
  - Drug withdrawal syndrome [Unknown]
  - Migraine [Unknown]
  - Muscle spasms [Unknown]
  - Systemic lupus erythematosus [Unknown]
  - Depression [Unknown]
  - Multiple sclerosis relapse [Unknown]
  - Malaise [Unknown]
  - Fatigue [Unknown]

NARRATIVE: CASE EVENT DATE: 201504
